FAERS Safety Report 9481831 (Version 2)
Quarter: 2013Q3

REPORT INFORMATION
  Report Type: Spontaneous
  Country: CA (occurrence: CA)
  Receive Date: 20130828
  Receipt Date: 20130828
  Transmission Date: 20140515
  Serious: Yes (Other)
  Sender: FDA-Public Use
  Company Number: CA-AMGEN-KDL210162

PATIENT
  Age: 44 Year
  Sex: Female

DRUGS (3)
  1. ENBREL [Suspect]
     Indication: RHEUMATOID ARTHRITIS
     Dosage: 25 MG, 2 TIMES/WK
     Route: 058
     Dates: start: 20040403
  2. PREDNISONE [Concomitant]
     Dosage: 8 MG, QD
  3. GOLD [Concomitant]
     Dosage: UNK UNK, UNK

REACTIONS (3)
  - Staphylococcal infection [Unknown]
  - Furuncle [Unknown]
  - Fascial infection [Unknown]
